FAERS Safety Report 18867319 (Version 2)
Quarter: 2021Q1

REPORT INFORMATION
  Report Type: Spontaneous
  Country: US (occurrence: US)
  Receive Date: 20210209
  Receipt Date: 20210323
  Transmission Date: 20210420
  Serious: Yes (Other)
  Sender: FDA-Public Use
  Company Number: US-ASTRAZENECA-2021A028163

PATIENT
  Sex: Male
  Weight: 90.7 kg

DRUGS (1)
  1. SYMBICORT [Suspect]
     Active Substance: BUDESONIDE\FORMOTEROL FUMARATE DIHYDRATE
     Indication: ASTHMA
     Dosage: 160 OF 4.5 MCG FOR ASTHMA ATLEAST 2 YEARS AGO BY RESPIRATORY INHALATION 1 PUFF AS REQUIRED. AS RE...
     Route: 055

REACTIONS (4)
  - Device delivery system issue [Unknown]
  - Wrong technique in device usage process [Not Recovered/Not Resolved]
  - Spinal cord compression [Unknown]
  - Body height decreased [Not Recovered/Not Resolved]
